FAERS Safety Report 16229193 (Version 1)
Quarter: 2019Q2

REPORT INFORMATION
  Report Type: Spontaneous
  Country: CH (occurrence: CH)
  Receive Date: 20190423
  Receipt Date: 20190423
  Transmission Date: 20190711
  Serious: Yes (Hospitalization)
  Sender: FDA-Public Use
  Company Number: CH-PFIZER INC-2019165835

PATIENT
  Age: 76 Year
  Sex: Male
  Weight: 76 kg

DRUGS (4)
  1. METFORMIN [Suspect]
     Active Substance: METFORMIN HYDROCHLORIDE
     Dosage: UNK
  2. QUILONORM [LITHIUM CARBONATE] [Suspect]
     Active Substance: LITHIUM CARBONATE
     Indication: BIPOLAR DISORDER
     Dosage: 450 MG, 1X/DAY
     Dates: start: 2015
  3. REMERON [Suspect]
     Active Substance: MIRTAZAPINE
     Dosage: UNK
  4. EFFEXOR XR [Suspect]
     Active Substance: VENLAFAXINE HYDROCHLORIDE
     Dosage: UNK

REACTIONS (13)
  - Muscle twitching [Unknown]
  - Renal failure [Recovering/Resolving]
  - Psychomotor hyperactivity [Unknown]
  - Tremor [Unknown]
  - Toxicity to various agents [Recovering/Resolving]
  - Electrocardiogram QT prolonged [Recovering/Resolving]
  - Catatonia [Unknown]
  - Depressive symptom [Unknown]
  - Motor dysfunction [Unknown]
  - Disturbance in attention [Unknown]
  - Dyskinesia [Recovering/Resolving]
  - Urinary retention [Recovering/Resolving]
  - Diarrhoea [Recovering/Resolving]
